FAERS Safety Report 26153440 (Version 1)
Quarter: 2025Q4

REPORT INFORMATION
  Report Type: Spontaneous
  Country: CA (occurrence: CA)
  Receive Date: 20251214
  Receipt Date: 20251214
  Transmission Date: 20260118
  Serious: Yes (Other)
  Sender: AUROBINDO
  Company Number: CA-AUROBINDO-AUR-APL-2025-062161

PATIENT
  Age: 18 Year
  Sex: Male

DRUGS (1)
  1. ESCITALOPRAM [Suspect]
     Active Substance: ESCITALOPRAM OXALATE
     Indication: Anxiety disorder
     Dosage: 1 DOSAGE FORM, ONCE A DAY
     Route: 061

REACTIONS (2)
  - Anxiety [Recovered/Resolved]
  - Product substitution issue [Recovered/Resolved]
